FAERS Safety Report 6377940-X (Version None)
Quarter: 2009Q3

REPORT INFORMATION
  Report Type: 
  Country: None (occurrence: None)
  Receive Date: 20090925
  Receipt Date: 20090917
  Transmission Date: 20100115
  Serious: Yes (Hospitalization, Other)
  Sender: FDA-Public Use
  Company Number: PHHO2009US11462

PATIENT
  Sex: Female
  Weight: 67.6 kg

DRUGS (5)
  1. VOLTAREN-XR [Suspect]
     Indication: ARTHRITIS
     Dosage: 100 MG, QD
     Route: 048
     Dates: start: 20090306, end: 20090818
  2. IRON SULFATETHIAMIN COMPOUND TAB [Concomitant]
  3. HYDROCHLOROTHIAZIDE [Concomitant]
  4. VALSARTAN [Concomitant]
  5. CLONIDINE [Concomitant]

REACTIONS (2)
  - GASTRIC ULCER [None]
  - IRON DEFICIENCY ANAEMIA [None]
